FAERS Safety Report 18221229 (Version 1)
Quarter: 2020Q3

REPORT INFORMATION
  Report Type: Spontaneous
  Country: US (occurrence: US)
  Receive Date: 20200831
  Receipt Date: 20200831
  Transmission Date: 20201103
  Serious: Yes (Other)
  Sender: FDA-Public Use
  Company Number: None

PATIENT
  Age: 32 Year
  Sex: Male
  Weight: 74.8 kg

DRUGS (2)
  1. VEDOLIZUMAB EVERY 8 WEEKS [Concomitant]
     Dates: start: 20200309
  2. FMP250 LOWER DELIVERY [Suspect]
     Active Substance: FECAL MICROBIOTA
     Indication: COLITIS ULCERATIVE
     Dosage: ?          OTHER FREQUENCY:ONCE;OTHER ROUTE:COLONOSCOPY?
     Dates: start: 20200625, end: 20200625

REACTIONS (2)
  - Giardia test positive [None]
  - Diarrhoea [None]

NARRATIVE: CASE EVENT DATE: 20200812
